FAERS Safety Report 7331498-7 (Version None)
Quarter: 2011Q1

REPORT INFORMATION
  Report Type: 
  Country: None (occurrence: None)
  Receive Date: 20110228
  Receipt Date: 20110228
  Transmission Date: 20110831
  Serious: Yes (Death)
  Sender: FDA-Public Use
  Company Number: None

PATIENT
  Age: 22 Year
  Sex: Female
  Weight: 104.3273 kg

DRUGS (1)
  1. LAMOTRIGINE [Suspect]
     Indication: EPILEPSY
     Dosage: 200 MG  BID PO
     Route: 048
     Dates: start: 20031017, end: 20070325

REACTIONS (2)
  - CONVULSION [None]
  - ANTICONVULSANT DRUG LEVEL ABNORMAL [None]
